FAERS Safety Report 4753468-5 (Version None)
Quarter: 2005Q3

REPORT INFORMATION
  Report Type: 
  Country: None (occurrence: None)
  Receive Date: 20050826
  Receipt Date: 20050811
  Transmission Date: 20060218
  Serious: Yes (Hospitalization, Other)
  Sender: FDA-Public Use
  Company Number: GBWYE898311AUG05

PATIENT
  Sex: Female

DRUGS (5)
  1. ENBREL [Suspect]
     Indication: RHEUMATOID ARTHRITIS
     Dosage: UNKNOWN
  2. VALPROIC ACID [Interacting]
     Dosage: UNKNOWN
  3. ZOPICLONE [Concomitant]
  4. OMEPRAZOLE [Concomitant]
  5. CANNABIS [Concomitant]

REACTIONS (4)
  - BILE DUCT STENOSIS [None]
  - GALLBLADDER DISORDER [None]
  - LIVER FUNCTION TEST ABNORMAL [None]
  - PANCREATITIS [None]
